FAERS Safety Report 14608837 (Version 3)
Quarter: 2018Q1

REPORT INFORMATION
  Report Type: Spontaneous
  Country: US (occurrence: US)
  Receive Date: 20180307
  Receipt Date: 20180329
  Transmission Date: 20180509
  Serious: Yes (Other)
  Sender: FDA-Public Use
  Company Number: US-PFIZER INC-2018085890

PATIENT
  Age: 49 Year
  Sex: Female

DRUGS (6)
  1. IBRANCE [Suspect]
     Active Substance: PALBOCICLIB
     Indication: BREAST CANCER METASTATIC
     Dosage: 75 MG, CYCLIC (Q DAY X21, 7 DAYS OFF)
     Dates: start: 2015
  2. LETROZOLE. [Concomitant]
     Active Substance: LETROZOLE
     Dosage: UNK
  3. ATIVAN [Concomitant]
     Active Substance: LORAZEPAM
     Dosage: UNK
  4. RESTORIL [Concomitant]
     Active Substance: TEMAZEPAM
     Dosage: UNK
  5. CYMBALTA [Concomitant]
     Active Substance: DULOXETINE HYDROCHLORIDE
     Dosage: UNK
  6. MORPHINE [Concomitant]
     Active Substance: MORPHINE
     Dosage: UNK

REACTIONS (5)
  - Bone pain [Unknown]
  - Fatigue [Unknown]
  - Cancer pain [Unknown]
  - Neoplasm progression [Unknown]
  - Malaise [Unknown]

NARRATIVE: CASE EVENT DATE: 201712
